FAERS Safety Report 20414743 (Version 1)
Quarter: 2022Q1

REPORT INFORMATION
  Report Type: Spontaneous
  Country: US (occurrence: US)
  Receive Date: 20220202
  Receipt Date: 20220202
  Transmission Date: 20220423
  Serious: No
  Sender: FDA-Public Use
  Company Number: US-GLENMARK PHARMACEUTICALS-2021GMK068049

PATIENT

DRUGS (3)
  1. TELMISARTAN [Suspect]
     Active Substance: TELMISARTAN
     Indication: Blood pressure abnormal
     Dosage: 80 MILLIGRAM, OD (TABLET RECIVED IN FOIL WRAP)
     Route: 048
     Dates: start: 2020
  2. TELMISARTAN [Suspect]
     Active Substance: TELMISARTAN
     Dosage: 80 MILLIGRAM, OD (TABLET RECIVED IN BOTTLE)
     Route: 048
     Dates: start: 20210805
  3. CIMETIDINE [Concomitant]
     Active Substance: CIMETIDINE
     Indication: Gastrointestinal disorder
     Dosage: UNK
     Route: 065

REACTIONS (2)
  - Drug ineffective [Unknown]
  - Product shape issue [Unknown]

NARRATIVE: CASE EVENT DATE: 20210805
